FAERS Safety Report 6084838-3 (Version None)
Quarter: 2009Q1

REPORT INFORMATION
  Report Type: 
  Country: None (occurrence: None)
  Receive Date: 20090218
  Receipt Date: 20090204
  Transmission Date: 20090719
  Serious: Yes (Life-Threatening, Hospitalization)
  Sender: FDA-Public Use
  Company Number: 2009000343

PATIENT
  Age: 47 Year
  Sex: Female

DRUGS (6)
  1. ERLOTINIB        (ERLOTINIB) [Suspect]
     Indication: BREAST CANCER
     Dosage: (100 MG, QD) ,ORAL
     Route: 048
     Dates: start: 20070529, end: 20081231
  2. LETROZOLE [Suspect]
     Indication: BREAST CANCER
     Dosage: (2.5 MG, QD) ,ORAL
     Route: 048
     Dates: start: 20070423
  3. KLONOPIN [Concomitant]
  4. CYMBALTA [Concomitant]
  5. CALCIUM (CALCIUM) [Concomitant]
  6. VITAMIN D [Concomitant]

REACTIONS (1)
  - THROMBOTIC THROMBOCYTOPENIC PURPURA [None]
